FAERS Safety Report 5391039-0 (Version None)
Quarter: 2007Q3

REPORT INFORMATION
  Report Type: 
  Country: None (occurrence: None)
  Receive Date: 20070719
  Receipt Date: 20070711
  Transmission Date: 20080115
  Serious: Yes (Other)
  Sender: FDA-Public Use
  Company Number: ES-ELI_LILLY_AND_COMPANY-ES200706005628

PATIENT
  Age: 71 Year
  Sex: Female

DRUGS (7)
  1. FORTEO [Suspect]
     Indication: OSTEOPOROSIS
     Dosage: 20 UG, UNK
     Route: 058
     Dates: start: 20050801, end: 20060911
  2. AZT [Concomitant]
     Indication: ACQUIRED IMMUNODEFICIENCY SYNDROME
  3. LAMIVUDINE [Concomitant]
     Indication: ACQUIRED IMMUNODEFICIENCY SYNDROME
  4. NEVIRAPINE [Concomitant]
     Indication: ACQUIRED IMMUNODEFICIENCY SYNDROME
  5. ATORVASTATIN CALCIUM [Concomitant]
     Indication: HYPERCHOLESTEROLAEMIA
     Route: 048
  6. ALENDRONATE SODIUM [Concomitant]
     Dates: start: 20041201
  7. CALCIUM D3 [Concomitant]
     Dosage: UNK, UNK
     Dates: start: 20041201

REACTIONS (3)
  - PHLEBITIS SUPERFICIAL [None]
  - THROMBOPHLEBITIS [None]
  - VARICOPHLEBITIS [None]
